FAERS Safety Report 7530923-6 (Version None)
Quarter: 2011Q2

REPORT INFORMATION
  Report Type: 
  Country: None (occurrence: None)
  Receive Date: 20110608
  Receipt Date: 20110527
  Transmission Date: 20111010
  Serious: Yes (Hospitalization, Other)
  Sender: FDA-Public Use
  Company Number: MX-ELI_LILLY_AND_COMPANY-MX201105008537

PATIENT
  Age: 38 Year
  Sex: Female
  Weight: 65 kg

DRUGS (8)
  1. CENTRUM [Concomitant]
     Dosage: UNK, UNKNOWN
     Route: 065
  2. HOMEOPATHIC PREPARATION [Concomitant]
     Indication: LAXATIVE SUPPORTIVE CARE
     Dosage: UNK, UNKNOWN
     Route: 065
  3. VALPROIC ACID [Concomitant]
     Dosage: 250 MG, UNKNOWN
     Route: 065
  4. EPIVAL                             /00228502/ [Concomitant]
     Dosage: 500 MG, EACH MORNING
     Route: 065
  5. VITAMIN E [Concomitant]
     Dosage: UNK, UNKNOWN
     Route: 065
  6. LITHIUM CARBONATE [Concomitant]
     Dosage: 300 MG, UNKNOWN
     Route: 065
  7. CLONAZEPAM [Concomitant]
     Dosage: UNK, UNKNOWN
     Route: 065
  8. ZYPREXA [Suspect]
     Indication: BIPOLAR I DISORDER
     Dosage: 20 MG, EACH EVENING
     Route: 048
     Dates: start: 20030101

REACTIONS (4)
  - WEIGHT INCREASED [None]
  - PANIC DISORDER [None]
  - JEALOUS DELUSION [None]
  - SOMNOLENCE [None]
